FAERS Safety Report 9631016 (Version 1)
Quarter: 2013Q4

REPORT INFORMATION
  Report Type: Spontaneous
  Country: IT (occurrence: None)
  Receive Date: 20131011
  Receipt Date: 20131011
  Transmission Date: 20140711
  Serious: Yes (Hospitalization)
  Sender: FDA-Public Use
  Company Number: 2013P1020047

PATIENT
  Age: 78 Year
  Sex: Female

DRUGS (1)
  1. DIGOXIN [Suspect]

REACTIONS (12)
  - Bundle branch block right [None]
  - Bundle branch block left [None]
  - Renal failure acute [None]
  - Hyperkalaemia [None]
  - Hyponatraemia [None]
  - Systolic dysfunction [None]
  - Stress cardiomyopathy [None]
  - Toxicity to various agents [None]
  - Disease recurrence [None]
  - Cardioactive drug level above therapeutic [None]
  - Blood pressure systolic increased [None]
  - Blood pressure diastolic decreased [None]
